FAERS Safety Report 9094751 (Version 1)
Quarter: 2013Q1

REPORT INFORMATION
  Report Type: Spontaneous
  Country: US (occurrence: US)
  Receive Date: 20130220
  Receipt Date: 20130220
  Transmission Date: 20140127
  Serious: No
  Sender: FDA-Public Use
  Company Number: US-BIOGENIDEC-2013BI013942

PATIENT
  Sex: Female

DRUGS (1)
  1. TYSABRI [Suspect]
     Indication: MULTIPLE SCLEROSIS
     Route: 042
     Dates: start: 20101118

REACTIONS (5)
  - Seborrhoea [Recovered/Resolved]
  - Hair texture abnormal [Recovered/Resolved]
  - Feeling abnormal [Not Recovered/Not Resolved]
  - Inappropriate schedule of drug administration [Unknown]
  - Alopecia [Unknown]
